FAERS Safety Report 13450162 (Version 1)
Quarter: 2017Q2

REPORT INFORMATION
  Report Type: Spontaneous
  Country: US (occurrence: US)
  Receive Date: 20170417
  Receipt Date: 20170417
  Transmission Date: 20170830
  Serious: No
  Sender: FDA-Public Use
  Company Number: US-BION-20160326

PATIENT
  Age: 62 Year
  Sex: Male
  Weight: 113.4 kg

DRUGS (7)
  1. ZOLPIDEM 12.5 CR [Concomitant]
     Indication: SEDATIVE THERAPY
  2. ATENOLOL. [Concomitant]
     Active Substance: ATENOLOL
     Indication: HYPERTENSION
  3. ALEVE [Suspect]
     Active Substance: NAPROXEN SODIUM
     Indication: BACK PAIN
     Route: 048
     Dates: start: 20160720
  4. LORAZEPAM. [Concomitant]
     Active Substance: LORAZEPAM
     Dosage: 1 DF TWICE DAILY
  5. HYDROCODONE IB [Concomitant]
     Indication: ANALGESIC THERAPY
     Dosage: 1 DF 4-6 TIMES A DAY
  6. TEMAZEPAM. [Concomitant]
     Active Substance: TEMAZEPAM
     Indication: NEUROPATHY PERIPHERAL
     Dosage: 1 FD TWICE DAILY
  7. CLONODINE [Concomitant]
     Indication: BACK PAIN
     Dosage: 2 DF ONLY TAKEN ONCE
     Dates: start: 20160721

REACTIONS (7)
  - Vision blurred [Recovered/Resolved]
  - Overdose [Recovered/Resolved]
  - Blood pressure increased [Recovered/Resolved]
  - Balance disorder [Recovered/Resolved]
  - Drug administration error [Recovered/Resolved]
  - Asthenia [Unknown]
  - Head discomfort [Recovered/Resolved]

NARRATIVE: CASE EVENT DATE: 20160720
